FAERS Safety Report 7027545-2 (Version None)
Quarter: 2010Q4

REPORT INFORMATION
  Report Type: 
  Country: None (occurrence: None)
  Receive Date: 20101004
  Receipt Date: 20100923
  Transmission Date: 20110411
  Serious: Yes (Other)
  Sender: FDA-Public Use
  Company Number: PHHY2010NL63592

PATIENT

DRUGS (1)
  1. RASILEZ [Suspect]
     Dosage: UNK

REACTIONS (4)
  - BLOOD PRESSURE INCREASED [None]
  - HYPOTENSION [None]
  - MALAISE [None]
  - RENAL IMPAIRMENT [None]
